FAERS Safety Report 8354210 (Version 3)
Quarter: 2012Q4

REPORT INFORMATION
  Report Type: Report from Study
  Country: FR (occurrence: FR)
  Receive Date: 20120125
  Receipt Date: 20121217
  Transmission Date: 20130627
  Serious: Yes (Hospitalization, Other)
  Sender: FDA-Public Use
  Company Number: PHHY2012FR003468

PATIENT
  Age: 70 Year
  Sex: Male
  Weight: 85 kg

DRUGS (6)
  1. ALISKIREN [Suspect]
     Indication: HYPERTENSION
     Dosage: 150 mg, daily
     Dates: start: 20100510, end: 20101011
  2. ALISKIREN [Suspect]
     Indication: DIABETIC NEPHROPATHY
  3. AVANDAMET [Concomitant]
     Dosage: 1 DF, BID
  4. AMLOR [Concomitant]
     Indication: HYPERTENSION
     Dosage: 10 mg, QD
     Dates: start: 20060320
  5. EUPRESSYL [Concomitant]
     Indication: HYPERTENSION
     Dosage: 60 mg, BID
     Dates: start: 2003, end: 20101025
  6. LASILIX [Concomitant]
     Indication: HYPERTENSION
     Dosage: 20 mg, QD
     Dates: start: 2003

REACTIONS (7)
  - Dyspnoea [Recovered/Resolved]
  - Orthopnoea [Recovered/Resolved]
  - Atrial fibrillation [Not Recovered/Not Resolved]
  - Weight increased [Unknown]
  - Oedema peripheral [Recovered/Resolved]
  - Cardiac failure [Unknown]
  - Blood creatinine increased [Recovered/Resolved with Sequelae]
